FAERS Safety Report 9336827 (Version 2)
Quarter: 2013Q3

REPORT INFORMATION
  Report Type: Spontaneous
  Country: PH (occurrence: PH)
  Receive Date: 20130607
  Receipt Date: 20130806
  Transmission Date: 20140515
  Serious: Yes (Other)
  Sender: FDA-Public Use
  Company Number: PH-009507513-1306PHL001074

PATIENT
  Age: 81 Year
  Sex: Male

DRUGS (1)
  1. COZAAR [Suspect]
     Indication: HYPERTENSION
     Dosage: ONE TABLET, ONCE A DAY
     Route: 048
     Dates: start: 2008, end: 2013

REACTIONS (3)
  - Cerebrovascular accident [Recovered/Resolved]
  - Stress [Unknown]
  - Poor quality sleep [Unknown]
